FAERS Safety Report 12496526 (Version 2)
Quarter: 2017Q1

REPORT INFORMATION
  Report Type: Spontaneous
  Country: DE (occurrence: DE)
  Receive Date: 20160624
  Receipt Date: 20170109
  Transmission Date: 20170428
  Serious: Yes (Other)
  Sender: FDA-Public Use
  Company Number: DE-CIPLA LTD.-2016DE08134

PATIENT

DRUGS (5)
  1. ACETYLCYSTEINE. [Suspect]
     Active Substance: ACETYLCYSTEINE
     Dosage: UNK
     Route: 065
  2. LAMOTRIGINE. [Suspect]
     Active Substance: LAMOTRIGINE
     Dosage: UNK
     Route: 065
  3. AMBROXOL [Suspect]
     Active Substance: AMBROXOL
     Dosage: UNK
     Route: 065
  4. QUETIAPINE. [Suspect]
     Active Substance: QUETIAPINE
     Dosage: UNK
     Route: 065
  5. POTASSIUM [Suspect]
     Active Substance: POTASSIUM
     Dosage: UNK
     Route: 065

REACTIONS (11)
  - Vulvar erosion [Recovered/Resolved]
  - Eyelid function disorder [Recovered/Resolved]
  - Cardiovascular disorder [Recovered/Resolved]
  - Stevens-Johnson syndrome [Recovered/Resolved]
  - Oral mucosa erosion [Recovered/Resolved]
  - Lip erosion [Recovered/Resolved]
  - Conjunctivitis [Recovered/Resolved]
  - Face injury [Recovered/Resolved]
  - Anal erosion [Recovered/Resolved]
  - Rash generalised [Recovered/Resolved]
  - Lip swelling [Recovered/Resolved]
